FAERS Safety Report 17388090 (Version 1)
Quarter: 2020Q1

REPORT INFORMATION
  Report Type: Spontaneous
  Country: AU (occurrence: AU)
  Receive Date: 20200207
  Receipt Date: 20200207
  Transmission Date: 20200409
  Serious: Yes (Other)
  Sender: FDA-Public Use
  Company Number: AU-MYLANLABS-2020M1010221

PATIENT
  Age: 32 Year
  Sex: Male

DRUGS (4)
  1. FLUCLOXACILLIN [Interacting]
     Active Substance: FLUCLOXACILLIN
     Indication: STAPHYLOCOCCAL SEPSIS
     Dosage: 2 GRAM, Q4H
     Route: 042
  2. MYCOPHENOLATE MOFETIL. [Suspect]
     Active Substance: MYCOPHENOLATE MOFETIL
     Dosage: UNK
  3. PREDNISOLONE. [Suspect]
     Active Substance: PREDNISOLONE
     Indication: STAPHYLOCOCCAL SEPSIS
     Dosage: UNK
  4. TACROLIMUS. [Suspect]
     Active Substance: TACROLIMUS
     Indication: STAPHYLOCOCCAL SEPSIS
     Dosage: 3 MILLIGRAM, BID
     Route: 048

REACTIONS (3)
  - Heart transplant rejection [Unknown]
  - Therapeutic response decreased [Unknown]
  - Drug interaction [Unknown]
